FAERS Safety Report 9303164 (Version 1)
Quarter: 2013Q2

REPORT INFORMATION
  Report Type: Spontaneous
  Country: US (occurrence: None)
  Receive Date: 20130521
  Receipt Date: 20130521
  Transmission Date: 20140414
  Serious: Yes (Other)
  Sender: FDA-Public Use
  Company Number: None

PATIENT
  Age: 70 Year
  Sex: Male

DRUGS (1)
  1. STIVARGA 40 MG BAYER [Suspect]
     Indication: COLORECTAL CANCER
     Route: 048
     Dates: start: 20130121, end: 20130423

REACTIONS (1)
  - Disease progression [None]
